FAERS Safety Report 15855551 (Version 2)
Quarter: 2019Q1

REPORT INFORMATION
  Report Type: Spontaneous
  Country: DK (occurrence: DK)
  Receive Date: 20190122
  Receipt Date: 20190207
  Transmission Date: 20190417
  Serious: Yes (Other)
  Sender: FDA-Public Use
  Company Number: DK-PERNIX THERAPEUTICS-DK-2019PER000006

PATIENT
  Age: 73 Year
  Sex: Male

DRUGS (1)
  1. SUMATRIPTAN SUCCINATE, NAPROXEN SODIUM [Suspect]
     Active Substance: NAPROXEN SODIUM\SUMATRIPTAN SUCCINATE
     Indication: PRODUCT USED FOR UNKNOWN INDICATION
     Dosage: UNK
     Dates: start: 2015, end: 2015

REACTIONS (1)
  - Pseudoporphyria [Recovered/Resolved]

NARRATIVE: CASE EVENT DATE: 2015
